FAERS Safety Report 4305620-0 (Version None)
Quarter: 2004Q1

REPORT INFORMATION
  Report Type: 
  Country: None (occurrence: None)
  Receive Date: 20040226
  Receipt Date: 20031215
  Transmission Date: 20041129
  Serious: No
  Sender: FDA-Public Use
  Company Number: US-BRISTOL-MYERS SQUIBB COMPANY-12458550

PATIENT
  Age: 27 Year
  Sex: Male

DRUGS (2)
  1. ABILIFY [Suspect]
     Indication: SCHIZOAFFECTIVE DISORDER
     Route: 048
     Dates: start: 20031209
  2. ACETAMINOPHEN [Concomitant]

REACTIONS (11)
  - ABNORMAL DREAMS [None]
  - ANOREXIA [None]
  - ANXIETY [None]
  - DEFAECATION URGENCY [None]
  - DIARRHOEA [None]
  - FEELING ABNORMAL [None]
  - INSOMNIA [None]
  - MUSCLE STRAIN [None]
  - PHOTOSENSITIVITY REACTION [None]
  - PSYCHOTIC DISORDER [None]
  - WEIGHT DECREASED [None]
